FAERS Safety Report 6608546-2 (Version None)
Quarter: 2010Q1

REPORT INFORMATION
  Report Type: 
  Country: None (occurrence: None)
  Receive Date: 20100301
  Receipt Date: 20100127
  Transmission Date: 20100710
  Serious: No
  Sender: FDA-Public Use
  Company Number: US-BAYER-201011528BCC

PATIENT
  Age: 69 Year
  Sex: Female
  Weight: 82 kg

DRUGS (2)
  1. ALEVE (CAPLET) [Suspect]
     Indication: ARTHRITIS
     Dosage: TOOK1 TO 2 ALEVE FOLLOWING BREAKFAST AND 1 TO 2 ALEVE CAPLETS APPROXIMATELY 8H AFTER FISRT DOSE
     Route: 048
     Dates: start: 19950101
  2. PREVACID [Concomitant]
     Route: 065

REACTIONS (1)
  - HAIR DISORDER [None]
